FAERS Safety Report 6577708-5 (Version None)
Quarter: 2010Q1

REPORT INFORMATION
  Report Type: 
  Country: None (occurrence: None)
  Receive Date: 20100211
  Receipt Date: 20100211
  Transmission Date: 20100710
  Serious: Yes (Hospitalization)
  Sender: FDA-Public Use
  Company Number: PHHO2005FI07619

PATIENT
  Sex: Female
  Weight: 68.2 kg

DRUGS (3)
  1. PLACEBO PLACEBO [Suspect]
     Indication: GLUCOSE TOLERANCE IMPAIRED
     Dosage: LEVEL 2
     Route: 065
     Dates: start: 20020508
  2. PLACEBO PLACEBO [Suspect]
     Indication: HYPERTENSION
     Dosage: LEVEL 2
     Dates: start: 20020508
  3. LIPITOR [Concomitant]

REACTIONS (5)
  - ARTHRALGIA [None]
  - LIPOMA [None]
  - LIPOMA EXCISION [None]
  - MENISCUS LESION [None]
  - MENISCUS OPERATION [None]
